FAERS Safety Report 5712034-5 (Version None)
Quarter: 2008Q2

REPORT INFORMATION
  Report Type: 
  Country: None (occurrence: None)
  Receive Date: 20080417
  Receipt Date: 20080409
  Transmission Date: 20081010
  Serious: Yes (Hospitalization)
  Sender: FDA-Public Use
  Company Number: 2008BI04623

PATIENT
  Sex: Female

DRUGS (3)
  1. AVONEX [Suspect]
     Indication: RELAPSING-REMITTING MULTIPLE SCLEROSIS
     Dosage: 30 UG;QW;TRPL
     Route: 064
     Dates: start: 20040901, end: 20060517
  2. GLUCOPHAGE [Concomitant]
  3. INSULIN [Concomitant]

REACTIONS (12)
  - ARRHYTHMIA [None]
  - CAESAREAN SECTION [None]
  - CONGENITAL ARTERIAL MALFORMATION [None]
  - DEHYDRATION [None]
  - DRUG EXPOSURE DURING PREGNANCY [None]
  - FOETAL DISTRESS SYNDROME [None]
  - FOETAL GROWTH RETARDATION [None]
  - MACROSOMIA [None]
  - POLYCYTHAEMIA [None]
  - PREMATURE BABY [None]
  - RENAL FAILURE [None]
  - THROMBOCYTOPENIA [None]
